FAERS Safety Report 12786140 (Version 3)
Quarter: 2016Q4

REPORT INFORMATION
  Report Type: Spontaneous
  Country: FR (occurrence: FR)
  Receive Date: 20160927
  Receipt Date: 20161014
  Transmission Date: 20170207
  Serious: Yes (Death)
  Sender: FDA-Public Use
  Company Number: FR-PFIZER INC-2016448407

PATIENT
  Age: 51 Year
  Sex: Male

DRUGS (2)
  1. ARGANOVA [Suspect]
     Active Substance: ARGATROBAN
     Dosage: 0.2 MCG/KG/MIN
     Route: 042
     Dates: start: 20160806, end: 20160807
  2. ARGANOVA [Suspect]
     Active Substance: ARGATROBAN
     Indication: HEPARIN-INDUCED THROMBOCYTOPENIA
     Dosage: 1 MCG/KG/MIN
     Route: 042
     Dates: start: 20160804, end: 20160804

REACTIONS (2)
  - Hepatic failure [Fatal]
  - Prothrombin time ratio decreased [Fatal]

NARRATIVE: CASE EVENT DATE: 20160804
